FAERS Safety Report 23878846 (Version 6)
Quarter: 2024Q3

REPORT INFORMATION
  Report Type: Spontaneous
  Country: US (occurrence: US)
  Receive Date: 20240521
  Receipt Date: 20240827
  Transmission Date: 20241016
  Serious: Yes (Hospitalization, Disabling, Other)
  Sender: MERCK
  Company Number: US-009507513-2402USA008515

PATIENT
  Sex: Male
  Weight: 52.707 kg

DRUGS (5)
  1. GARDASIL 9 [Suspect]
     Active Substance: HUMAN PAPILLOMAVIRUS TYPE 11 L1 CAPSID PROTEIN ANTIGEN\HUMAN PAPILLOMAVIRUS TYPE 16 L1 CAPSID PROTEI
     Indication: Prophylaxis
     Dosage: .5 MILLILITER
     Route: 030
     Dates: start: 20190813
  2. STROMECTOL [Suspect]
     Active Substance: IVERMECTIN
     Dosage: UNK
     Route: 048
  3. TYLENOL [Suspect]
     Active Substance: ACETAMINOPHEN
     Dosage: UNK
  4. IBUPROFEN [Suspect]
     Active Substance: IBUPROFEN
     Dosage: UNK
  5. MENINGOCOCCAL POLYSACCHARIDE VACCINE A NOS [Concomitant]
     Active Substance: MENINGOCOCCAL POLYSACCHARIDE VACCINE A\NEISSERIA MENINGITIDIS GROUP A CAPSULAR POLYSACCHARIDE ANTIGE
     Dosage: 0.5 MILLILITER
     Route: 030
     Dates: start: 20190813

REACTIONS (74)
  - Lyme disease [Not Recovered/Not Resolved]
  - Motion sickness [Not Recovered/Not Resolved]
  - Dialysis [Unknown]
  - Congestive hepatopathy [Unknown]
  - Parasitic gastroenteritis [Unknown]
  - Complex regional pain syndrome [Not Recovered/Not Resolved]
  - Eczema [Not Recovered/Not Resolved]
  - Chronic fatigue syndrome [Not Recovered/Not Resolved]
  - Irritable bowel syndrome [Not Recovered/Not Resolved]
  - Autonomic nervous system imbalance [Not Recovered/Not Resolved]
  - Attention deficit hyperactivity disorder [Not Recovered/Not Resolved]
  - Respiratory tract infection [Unknown]
  - Babesiosis [Recovered/Resolved]
  - Blood cholesterol abnormal [Unknown]
  - Stress [Unknown]
  - Anaemia folate deficiency [Unknown]
  - Vitamin B complex deficiency [Unknown]
  - Vitamin D deficiency [Unknown]
  - Adverse drug reaction [Unknown]
  - Food intolerance [Unknown]
  - Intestinal barrier dysfunction [Unknown]
  - Dysbiosis [Unknown]
  - Vitamin B12 deficiency [Unknown]
  - Serum ferritin decreased [Unknown]
  - Red blood cell count increased [Unknown]
  - COVID-19 [Unknown]
  - Hyperarousal [Unknown]
  - Painful erection [Unknown]
  - Spontaneous penile erection [Unknown]
  - Gastrointestinal bacterial overgrowth [Unknown]
  - Tooth extraction [Unknown]
  - Scar [Unknown]
  - Arthropod bite [Unknown]
  - Vitamin B12 increased [Unknown]
  - Anti-cyclic citrullinated peptide antibody positive [Unknown]
  - Fungal infection [Unknown]
  - Pelvic discomfort [Unknown]
  - Orchitis [Unknown]
  - Helicobacter test positive [Unknown]
  - Rheumatoid factor increased [Unknown]
  - Dialysis related complication [Unknown]
  - Ill-defined disorder [Unknown]
  - Ligament laxity [Unknown]
  - Concussion [Unknown]
  - Bruxism [Unknown]
  - Sensitivity to weather change [Unknown]
  - Dyslexia [Unknown]
  - Emotional distress [Not Recovered/Not Resolved]
  - Metabolic disorder [Unknown]
  - Nightmare [Unknown]
  - Feeling abnormal [Not Recovered/Not Resolved]
  - Sensation of foreign body [Unknown]
  - Reverse tri-iodothyronine increased [Unknown]
  - Obsessive-compulsive disorder [Unknown]
  - Malnutrition [Unknown]
  - Scoliosis [Unknown]
  - Jaw disorder [Unknown]
  - Anxiety [Not Recovered/Not Resolved]
  - Lymphocyte count abnormal [Unknown]
  - Body mass index decreased [Unknown]
  - Immunology test abnormal [Unknown]
  - Dehydration [Unknown]
  - Infection [Not Recovered/Not Resolved]
  - Bladder dysfunction [Not Recovered/Not Resolved]
  - Urinary tract infection [Unknown]
  - Eye infection [Unknown]
  - Aphasia [Unknown]
  - Oropharyngeal pain [Unknown]
  - Pelvic floor dysfunction [Unknown]
  - Functional gastrointestinal disorder [Unknown]
  - Localised infection [Recovered/Resolved]
  - Onychomycosis [Not Recovered/Not Resolved]
  - Angiopathy [Unknown]
  - Product use in unapproved indication [Unknown]

NARRATIVE: CASE EVENT DATE: 20190101
